FAERS Safety Report 4379909-3 (Version None)
Quarter: 2004Q2

REPORT INFORMATION
  Report Type: 
  Country: None (occurrence: None)
  Receive Date: 20040614
  Receipt Date: 20040602
  Transmission Date: 20050107
  Serious: Yes (Other)
  Sender: FDA-Public Use
  Company Number: DEU-2004-0000815

PATIENT
  Age: 68 Year
  Sex: Female
  Weight: 92 kg

DRUGS (3)
  1. OXYGESIC 10 MG(OXYCODONE HYDROCHLORIDE) CR TABLET [Suspect]
     Indication: PAIN
     Dosage: 10 MG, BID, ORAL   : 20 MG , BID , ORAL
     Route: 048
     Dates: start: 20040401, end: 20040405
  2. OXYGESIC 10 MG(OXYCODONE HYDROCHLORIDE) CR TABLET [Suspect]
     Indication: PAIN
     Dosage: 10 MG, BID, ORAL   : 20 MG , BID , ORAL
     Route: 048
     Dates: start: 20040406, end: 20040417
  3. MARCUMAR [Concomitant]

REACTIONS (1)
  - INTERNATIONAL NORMALISED RATIO DECREASED [None]
